FAERS Safety Report 8817071 (Version 1)
Quarter: 2012Q4

REPORT INFORMATION
  Report Type: Spontaneous
  Country: US (occurrence: None)
  Receive Date: 20121003
  Receipt Date: 20121003
  Transmission Date: 20130627
  Serious: Yes (Other)
  Sender: FDA-Public Use
  Company Number: None

PATIENT
  Age: 55 Year
  Sex: Male
  Weight: 79.5 kg

DRUGS (1)
  1. VALACYCLOVIR [Suspect]
     Indication: HERPES VIRUS INFECTION
     Route: 048
     Dates: start: 20081001, end: 20121001

REACTIONS (5)
  - Hypoaesthesia [None]
  - Sensory disturbance [None]
  - Abnormal dreams [None]
  - Pain in extremity [None]
  - Hyperaesthesia [None]
